FAERS Safety Report 19238208 (Version 1)
Quarter: 2021Q2

REPORT INFORMATION
  Report Type: Spontaneous
  Country: US (occurrence: US)
  Receive Date: 20210510
  Receipt Date: 20210510
  Transmission Date: 20210717
  Serious: Yes (Hospitalization)
  Sender: FDA-Public Use
  Company Number: None

PATIENT
  Age: 69 Year
  Sex: Female

DRUGS (15)
  1. COSENTYX [Suspect]
     Active Substance: SECUKINUMAB
     Indication: PSORIASIS
     Dosage: ?          OTHER FREQUENCY:WEEKLY FOR 5 WEEKS;?
     Route: 058
     Dates: start: 20210414
  2. LOSARTAN. [Concomitant]
     Active Substance: LOSARTAN
  3. NITROFURANTOIN. [Concomitant]
     Active Substance: NITROFURANTOIN
  4. CLOPIDOGREL [Concomitant]
     Active Substance: CLOPIDOGREL BISULFATE
  5. GLIPIZIDE. [Concomitant]
     Active Substance: GLIPIZIDE
  6. CITALOPRAM [Concomitant]
     Active Substance: CITALOPRAM HYDROBROMIDE
  7. LEVOTHYROXINE. [Concomitant]
     Active Substance: LEVOTHYROXINE
  8. CARVEDILOL. [Concomitant]
     Active Substance: CARVEDILOL
  9. ISOSORBIDE. [Concomitant]
     Active Substance: ISOSORBIDE
  10. GABAPENTIN. [Concomitant]
     Active Substance: GABAPENTIN
  11. TRAMADOL. [Concomitant]
     Active Substance: TRAMADOL
  12. ATORVASTATIN [Concomitant]
     Active Substance: ATORVASTATIN
  13. DOK [Concomitant]
     Active Substance: DOCUSATE SODIUM
  14. PANTOPRAZOLE [Concomitant]
     Active Substance: PANTOPRAZOLE
  15. METOCARBAMOL [Concomitant]
     Active Substance: METHOCARBAMOL

REACTIONS (1)
  - Ankle fracture [None]

NARRATIVE: CASE EVENT DATE: 20210418
